FAERS Safety Report 11285177 (Version 1)
Quarter: 2015Q3

REPORT INFORMATION
  Report Type: Spontaneous
  Country: JP (occurrence: JP)
  Receive Date: 20150720
  Receipt Date: 20150720
  Transmission Date: 20151125
  Serious: Yes (Congenital Anomaly, Other)
  Sender: FDA-Public Use
  Company Number: JP-MYLANLABS-2015M1023575

PATIENT

DRUGS (2)
  1. VALPROATE SEMISODIUM [Suspect]
     Active Substance: DIVALPROEX SODIUM
     Indication: EPILEPSY
     Dosage: 600MG
     Route: 064
  2. CLONAZEPAM. [Suspect]
     Active Substance: CLONAZEPAM
     Indication: EPILEPSY
     Dosage: 10MG
     Route: 064

REACTIONS (2)
  - Ventricular septal defect [Unknown]
  - Foetal exposure during pregnancy [Unknown]
